FAERS Safety Report 17637201 (Version 1)
Quarter: 2020Q2

REPORT INFORMATION
  Report Type: Spontaneous
  Country: US (occurrence: US)
  Receive Date: 20200406
  Receipt Date: 20200406
  Transmission Date: 20200713
  Serious: No
  Sender: FDA-Public Use
  Company Number: None

PATIENT
  Age: 80 Year
  Sex: Female
  Weight: 78.02 kg

DRUGS (8)
  1. SOTOLOL [Concomitant]
     Active Substance: SOTALOL
  2. MAGNESIUM [Concomitant]
     Active Substance: MAGNESIUM
  3. HYDROCHLOROTHIAZIDE. [Concomitant]
     Active Substance: HYDROCHLOROTHIAZIDE
  4. ATORVASTATIN [Concomitant]
     Active Substance: ATORVASTATIN
  5. DOXYCYCLINE MONOHYDRATE 100MG CAPS [Suspect]
     Active Substance: DOXYCYCLINE
     Indication: INFECTION
     Route: 048
     Dates: start: 20200220, end: 20200302
  6. MYLACAY [Concomitant]
  7. ELIQUIS [Concomitant]
     Active Substance: APIXABAN
  8. VITAMINS [Concomitant]
     Active Substance: VITAMINS

REACTIONS (1)
  - Headache [None]
